FAERS Safety Report 10250867 (Version 4)
Quarter: 2014Q3

REPORT INFORMATION
  Report Type: Spontaneous
  Country: JP (occurrence: JP)
  Receive Date: 20140620
  Receipt Date: 20140822
  Transmission Date: 20150326
  Serious: Yes (Hospitalization, Other)
  Sender: FDA-Public Use
  Company Number: JP-UCBSA-2014001027

PATIENT
  Age: 36 Year
  Sex: Male

DRUGS (8)
  1. ALEVIATIN [Concomitant]
     Active Substance: PHENYTOIN SODIUM
     Indication: CONVULSION
     Dosage: 200 MG, ONCE DAILY (QD)
     Route: 048
     Dates: start: 20071113, end: 20111212
  2. HYDANTOL [Concomitant]
     Active Substance: PHENYTOIN SODIUM
     Indication: CONVULSION
     Dosage: 75 MG, ONCE DAILY (QD)
     Route: 048
     Dates: start: 20071113, end: 20111212
  3. HYDANTOL [Concomitant]
     Active Substance: PHENYTOIN SODIUM
     Indication: EPILEPSY
     Dosage: 100 MG, ONCE DAILY (QD)
     Route: 048
     Dates: start: 20111213, end: 20120305
  4. HYDANTOL [Concomitant]
     Active Substance: PHENYTOIN SODIUM
     Dosage: 25 MG, ONCE DAILY (QD)
     Route: 048
     Dates: start: 20120306, end: 20140315
  5. KEPPRA [Suspect]
     Active Substance: LEVETIRACETAM
     Dosage: 500 MG, 3X/DAY (TID)
     Route: 048
     Dates: start: 20140316, end: 20140603
  6. HYDANTOL [Concomitant]
     Active Substance: PHENYTOIN SODIUM
     Dosage: 75 MG, ONCE DAILY (QD)
     Route: 048
     Dates: start: 20140513
  7. KEPPRA [Suspect]
     Active Substance: LEVETIRACETAM
     Indication: EPILEPSY
     Dosage: 500 MG, 2X/DAY (BID)
     Route: 048
     Dates: start: 20111115, end: 20140315
  8. ALEVIATIN [Concomitant]
     Active Substance: PHENYTOIN SODIUM
     Indication: EPILEPSY
     Dosage: 200 MG, ONCE DAILY (QD)
     Route: 048
     Dates: start: 20140316

REACTIONS (4)
  - Agitation [Recovered/Resolved]
  - Irritability [Recovered/Resolved]
  - Status epilepticus [Recovering/Resolving]
  - Mood altered [Recovered/Resolved]

NARRATIVE: CASE EVENT DATE: 20140315
